FAERS Safety Report 9653177 (Version 1)
Quarter: 2013Q4

REPORT INFORMATION
  Report Type: Spontaneous
  Country: US (occurrence: US)
  Receive Date: 20131029
  Receipt Date: 20131029
  Transmission Date: 20140711
  Serious: Yes (Other)
  Sender: FDA-Public Use
  Company Number: US-GLAXOSMITHKLINE-A1046721A

PATIENT
  Sex: Female

DRUGS (8)
  1. ADVAIR [Suspect]
     Indication: ASTHMA
     Dosage: 1PUFF TWICE PER DAY
     Route: 055
     Dates: start: 2004
  2. VENTOLIN [Suspect]
     Indication: ASTHMA
     Dosage: 2PUFF AS REQUIRED
  3. FLUOXETINE [Concomitant]
  4. LEVOTHYROXINE [Concomitant]
  5. RANITIDINE [Concomitant]
  6. PRAVASTATIN [Concomitant]
  7. AMITRIPTYLINE [Concomitant]
  8. CYCLOBENZAPRINE [Concomitant]

REACTIONS (8)
  - Choking [Unknown]
  - Dry mouth [Not Recovered/Not Resolved]
  - Tremor [Not Recovered/Not Resolved]
  - Inhalation therapy [Not Recovered/Not Resolved]
  - Cough [Not Recovered/Not Resolved]
  - Back disorder [Unknown]
  - Musculoskeletal discomfort [Unknown]
  - Tongue disorder [Unknown]
